FAERS Safety Report 11223514 (Version 1)
Quarter: 2015Q2

REPORT INFORMATION
  Report Type: Spontaneous
  Country: SE (occurrence: SE)
  Receive Date: 20150628
  Receipt Date: 20150628
  Transmission Date: 20150821
  Serious: Yes (Hospitalization)
  Sender: FDA-Public Use
  Company Number: SE-009507513-1506SWE008443

PATIENT
  Age: 20 Year
  Sex: Female

DRUGS (1)
  1. NEXPLANON [Suspect]
     Active Substance: ETONOGESTREL
     Indication: CONTRACEPTION
     Route: 058
     Dates: start: 20140619, end: 20150107

REACTIONS (3)
  - Abortion spontaneous [Recovered/Resolved]
  - Pregnancy with implant contraceptive [Recovered/Resolved]
  - Drug ineffective [Recovered/Resolved]

NARRATIVE: CASE EVENT DATE: 201408
